FAERS Safety Report 14972466 (Version 1)
Quarter: 2018Q2

REPORT INFORMATION
  Report Type: Spontaneous
  Country: DE (occurrence: DE)
  Receive Date: 20180605
  Receipt Date: 20180605
  Transmission Date: 20180711
  Serious: Yes (Hospitalization)
  Sender: FDA-Public Use
  Company Number: DE-TEVA-2018-DE-901899

PATIENT
  Age: 62 Year
  Sex: Female
  Weight: 112 kg

DRUGS (24)
  1. DIAZEPAM. [Suspect]
     Active Substance: DIAZEPAM
     Dosage: 1 MG, NEED
     Route: 048
  2. URSODEOXYCHOLIC ACID [Concomitant]
     Active Substance: URSODIOL
     Route: 048
  3. METAMIZOL [Concomitant]
     Active Substance: METAMIZOLE SODIUM
     Dosage: 500 MG, 1.5-1.5-1.5-1.5
     Route: 048
  4. ATORVASTATIN [Concomitant]
     Active Substance: ATORVASTATIN
     Dosage: 20 MG, 0-0-1-0
     Route: 048
  5. LACTULOSE. [Concomitant]
     Active Substance: LACTULOSE
     Dosage: 1 MB, REQUIREMENT
     Route: 048
  6. FUROSEMID [Suspect]
     Active Substance: FUROSEMIDE
     Dosage: 40 MG, 1.5-1-0-0
     Route: 048
  7. GABAPENTIN. [Suspect]
     Active Substance: GABAPENTIN
     Route: 048
  8. MAGNESIUM [Concomitant]
     Active Substance: MAGNESIUM
     Route: 048
  9. PANTOPRAZOL [Concomitant]
     Active Substance: PANTOPRAZOLE SODIUM
     Route: 048
  10. COLECALCIFEROL [Concomitant]
     Active Substance: CHOLECALCIFEROL
     Dosage: 20000 IE / WEEK, ACCORDING TO THE SCHEME
     Route: 048
  11. PREDNISOLONE. [Concomitant]
     Active Substance: PREDNISOLONE
     Route: 048
  12. HYDROMORPHON [Suspect]
     Active Substance: HYDROMORPHONE
     Dosage: 5.2 MG, NEED
     Route: 048
  13. LEVOTHYROXIN [Concomitant]
     Active Substance: LEVOTHYROXINE
     Route: 048
  14. SALBUTAMOL [Concomitant]
     Active Substance: ALBUTEROL
     Dosage: 2 HUB , REQUIREMENT
     Route: 055
  15. SIMETICON [Concomitant]
     Dosage: 1 MB, REQUIREMENT
     Route: 048
  16. NEBIVOLOL. [Suspect]
     Active Substance: NEBIVOLOL
     Dosage: 5 MG, 0.5-0-0.5-0
     Route: 048
  17. CLONAZEPAM. [Suspect]
     Active Substance: CLONAZEPAM
     Dosage: 0.5 MG, 0.5-0-1.5-0
     Route: 048
  18. APIXABAN [Concomitant]
     Active Substance: APIXABAN
     Route: 048
  19. HYDROMORPHON [Suspect]
     Active Substance: HYDROMORPHONE
     Route: 048
  20. LAMOTRIGIN [Suspect]
     Active Substance: LAMOTRIGINE
     Route: 048
  21. LEVETIRACETAM. [Suspect]
     Active Substance: LEVETIRACETAM
     Route: 048
  22. IRBESARTAN. [Suspect]
     Active Substance: IRBESARTAN
     Dosage: 75 MG, 1-0-2-0
     Route: 048
  23. SALMETEROL [Concomitant]
     Active Substance: SALMETEROL
     Dosage: 2-0-2-0
     Route: 055
  24. IBANDRONIC ACID. [Concomitant]
     Active Substance: IBANDRONIC ACID
     Dosage: 3 MG, ACCORDING TO THE SCHEME

REACTIONS (3)
  - Wound [Unknown]
  - Syncope [Unknown]
  - Fall [Unknown]
